FAERS Safety Report 16287511 (Version 2)
Quarter: 2020Q4

REPORT INFORMATION
  Report Type: Spontaneous
  Country: US (occurrence: US)
  Receive Date: 20190508
  Receipt Date: 20201023
  Transmission Date: 20210113
  Serious: Yes (Death, Hospitalization, Other)
  Sender: FDA-Public Use
  Company Number: US-ASTRAZENECA-2019SE60748

PATIENT
  Age: 25222 Day
  Sex: Female
  Weight: 81.7 kg

DRUGS (41)
  1. PROTONIX [Suspect]
     Active Substance: PANTOPRAZOLE SODIUM
     Indication: DYSPEPSIA
     Route: 065
     Dates: start: 201501, end: 20180323
  2. CADUET [Concomitant]
     Active Substance: AMLODIPINE BESYLATE\ATORVASTATIN CALCIUM
     Indication: HYPERTENSION
     Route: 065
     Dates: start: 20080304, end: 20110418
  3. CARVEDILOL. [Concomitant]
     Active Substance: CARVEDILOL
     Indication: CARDIAC FAILURE
     Route: 065
     Dates: start: 20080304, end: 20170722
  4. BD INSULIN [Concomitant]
     Indication: DIABETES MELLITUS
     Route: 065
     Dates: start: 20140514, end: 20160404
  5. ISOSORBIDE. [Concomitant]
     Active Substance: ISOSORBIDE
     Indication: CHEST PAIN
     Route: 065
     Dates: start: 20080304, end: 20170722
  6. LOSARTAN. [Concomitant]
     Active Substance: LOSARTAN
     Indication: PAIN
     Route: 065
  7. HEPARIN [Concomitant]
     Active Substance: HEPARIN SODIUM
     Indication: PAIN
     Route: 065
  8. PROTONIX [Suspect]
     Active Substance: PANTOPRAZOLE SODIUM
     Indication: DYSPEPSIA
     Dosage: GENERIC
     Route: 065
     Dates: start: 201501, end: 20180323
  9. FERROUS SULFATE. [Concomitant]
     Active Substance: FERROUS SULFATE
     Indication: IRON DEFICIENCY
     Route: 065
     Dates: start: 20080305
  10. ADVAIR HFA [Concomitant]
     Active Substance: FLUTICASONE PROPIONATE\SALMETEROL XINAFOATE
     Indication: PAIN
     Route: 065
  11. PRILOSEC [Suspect]
     Active Substance: OMEPRAZOLE MAGNESIUM
     Indication: DYSPEPSIA
     Route: 048
     Dates: start: 201501, end: 201803
  12. ACETAMINOPHEN. [Concomitant]
     Active Substance: ACETAMINOPHEN
     Indication: PAIN
     Route: 065
     Dates: start: 20140926
  13. PREDNISONE. [Concomitant]
     Active Substance: PREDNISONE
     Indication: PAIN
     Route: 065
  14. KLOR-CON [Concomitant]
     Active Substance: POTASSIUM CHLORIDE
     Indication: PAIN
     Route: 065
  15. TAZTIA XT [Concomitant]
     Active Substance: DILTIAZEM HYDROCHLORIDE
     Indication: PAIN
     Route: 065
  16. CIPROFLOXACIN. [Concomitant]
     Active Substance: CIPROFLOXACIN
     Indication: PAIN
     Route: 065
  17. LEVEMIR [Concomitant]
     Active Substance: INSULIN DETEMIR
     Indication: PAIN
     Route: 065
  18. PRILOSEC [Suspect]
     Active Substance: OMEPRAZOLE MAGNESIUM
     Indication: DYSPEPSIA
     Dosage: GENERIC
     Route: 065
     Dates: start: 20140218, end: 20160210
  19. PRILOSEC OTC [Suspect]
     Active Substance: OMEPRAZOLE MAGNESIUM
     Indication: DYSPEPSIA
     Route: 048
     Dates: start: 20161006, end: 20180430
  20. HUMALOG [Concomitant]
     Active Substance: INSULIN LISPRO
     Indication: PAIN
     Route: 065
  21. WARFARIN [Concomitant]
     Active Substance: WARFARIN
     Indication: PAIN
     Route: 065
  22. PRILOSEC [Suspect]
     Active Substance: OMEPRAZOLE MAGNESIUM
     Indication: DYSPEPSIA
     Route: 048
     Dates: start: 20161217, end: 20180430
  23. COZAAR [Concomitant]
     Active Substance: LOSARTAN POTASSIUM
     Indication: PAIN
     Route: 065
  24. LANTUS [Concomitant]
     Active Substance: INSULIN GLARGINE
     Indication: PAIN
     Route: 065
  25. LIPITOR [Concomitant]
     Active Substance: ATORVASTATIN CALCIUM
     Indication: PAIN
     Route: 065
  26. AMLODIPINE [Concomitant]
     Active Substance: AMLODIPINE BESYLATE
     Indication: PAIN
     Route: 065
  27. METOLAZONE. [Concomitant]
     Active Substance: METOLAZONE
     Indication: PAIN
     Route: 065
  28. FLUCONAZOLE. [Concomitant]
     Active Substance: FLUCONAZOLE
     Indication: PAIN
     Route: 065
  29. FOLIC ACID. [Concomitant]
     Active Substance: FOLIC ACID
     Indication: PAIN
     Route: 065
  30. ONDANSETRON [Concomitant]
     Active Substance: ONDANSETRON
     Indication: PAIN
     Route: 065
  31. POLYETHYLENE [Concomitant]
     Active Substance: HIGH DENSITY POLYETHYLENE
     Indication: PAIN
     Route: 065
  32. PRILOSEC OTC [Suspect]
     Active Substance: OMEPRAZOLE MAGNESIUM
     Indication: DYSPEPSIA
     Route: 048
     Dates: start: 201501, end: 201803
  33. TRAMADOL. [Concomitant]
     Active Substance: TRAMADOL
     Indication: PAIN
     Route: 065
     Dates: start: 20080608, end: 20130728
  34. SPIRONOLACTONE. [Concomitant]
     Active Substance: SPIRONOLACTONE
     Indication: PAIN
     Route: 065
  35. PROAIR HFA [Concomitant]
     Active Substance: ALBUTEROL SULFATE
     Indication: PAIN
     Route: 065
  36. NITROSTAT [Concomitant]
     Active Substance: NITROGLYCERIN
     Indication: PAIN
     Route: 065
  37. GABAPENTIN. [Concomitant]
     Active Substance: GABAPENTIN
     Indication: PAIN
     Route: 065
  38. PROTONIX [Suspect]
     Active Substance: PANTOPRAZOLE SODIUM
     Indication: DYSPEPSIA
     Dosage: GENERIC
     Route: 065
  39. ASPIRIN. [Concomitant]
     Active Substance: ASPIRIN
     Indication: PAIN
     Route: 065
     Dates: start: 20161004
  40. DILTIAZEM. [Concomitant]
     Active Substance: DILTIAZEM
     Indication: PAIN
     Route: 065
  41. IPRATROPIUM [Concomitant]
     Active Substance: IPRATROPIUM
     Indication: PAIN
     Route: 065

REACTIONS (5)
  - Urinary tract infection [Fatal]
  - Septic shock [Fatal]
  - Chronic kidney disease [Unknown]
  - End stage renal disease [Unknown]
  - Acute kidney injury [Unknown]

NARRATIVE: CASE EVENT DATE: 20140808
